FAERS Safety Report 10031066 (Version 2)
Quarter: 2014Q2

REPORT INFORMATION
  Report Type: Spontaneous
  Country: US (occurrence: US)
  Receive Date: 20140324
  Receipt Date: 20140407
  Transmission Date: 20141212
  Serious: Yes (Hospitalization)
  Sender: FDA-Public Use
  Company Number: US-BIOGENIDEC-2014BI024824

PATIENT
  Age: 37 Year
  Sex: Female
  Weight: 73 kg

DRUGS (4)
  1. AVONEX [Suspect]
     Indication: MULTIPLE SCLEROSIS
     Route: 030
     Dates: start: 19990201, end: 199902
  2. ZOLOFT [Concomitant]
  3. VALIUM [Concomitant]
  4. COPAXONE [Concomitant]

REACTIONS (9)
  - Gait disturbance [Unknown]
  - Injection site mass [Unknown]
  - Crying [Unknown]
  - Injection site pain [Unknown]
  - Influenza like illness [Unknown]
  - Bladder disorder [Unknown]
  - Hypoaesthesia [Unknown]
  - Chest pain [Unknown]
  - Migraine [Not Recovered/Not Resolved]
